FAERS Safety Report 11535335 (Version 1)
Quarter: 2015Q3

REPORT INFORMATION
  Report Type: Spontaneous
  Country: US (occurrence: US)
  Receive Date: 20150922
  Receipt Date: 20150922
  Transmission Date: 20151125
  Serious: Yes (Other)
  Sender: FDA-Public Use
  Company Number: US-BAYER-2015-422382

PATIENT
  Age: 45 Year
  Sex: Female
  Weight: 67.57 kg

DRUGS (1)
  1. OCELLA [Suspect]
     Active Substance: DROSPIRENONE\ETHINYL ESTRADIOL
     Indication: CONTRACEPTION
     Dosage: 0.3MG/0.03

REACTIONS (2)
  - Diarrhoea [None]
  - Coeliac disease [None]

NARRATIVE: CASE EVENT DATE: 2013
